FAERS Safety Report 16872710 (Version 1)
Quarter: 2019Q4

REPORT INFORMATION
  Report Type: Spontaneous
  Country: IE (occurrence: IE)
  Receive Date: 20191001
  Receipt Date: 20191001
  Transmission Date: 20200122
  Serious: Yes (Other)
  Sender: FDA-Public Use
  Company Number: IE-MYLANLABS-2019M1091022

PATIENT
  Age: 53 Year
  Sex: Female

DRUGS (1)
  1. CLOZARIL [Suspect]
     Active Substance: CLOZAPINE
     Indication: SCHIZOPHRENIA
     Dosage: UNK
     Route: 048
     Dates: start: 20100527

REACTIONS (4)
  - Carotid artery occlusion [Unknown]
  - Ventricular septal defect [Unknown]
  - Cerebrovascular accident [Unknown]
  - Left atrial dilatation [Unknown]

NARRATIVE: CASE EVENT DATE: 2019
